FAERS Safety Report 10963457 (Version 4)
Quarter: 2015Q2

REPORT INFORMATION
  Report Type: Spontaneous
  Country: US (occurrence: None)
  Receive Date: 20150326
  Receipt Date: 20150601
  Transmission Date: 20150821
  Serious: Yes (Hospitalization, Other)
  Sender: FDA-Public Use
  Company Number: ADR-2015-00572

PATIENT
  Age: 36 Year
  Sex: Female

DRUGS (1)
  1. BACLOFEN INTRATHECAL 2000 MCG/ML (CANGENE) [Suspect]
     Active Substance: BACLOFEN
     Indication: MUSCLE SPASTICITY

REACTIONS (12)
  - Implant site haematoma [None]
  - Overdose [None]
  - Muscle spasms [None]
  - Device failure [None]
  - Muscle spasticity [None]
  - Pump reservoir issue [None]
  - Disease recurrence [None]
  - Drug ineffective [None]
  - Internal haemorrhage [None]
  - Device breakage [None]
  - Device kink [None]
  - Incorrect drug administration rate [None]
